FAERS Safety Report 9136558 (Version 1)
Quarter: 2013Q1

REPORT INFORMATION
  Report Type: Spontaneous
  Country: US (occurrence: US)
  Receive Date: 20130304
  Receipt Date: 20130304
  Transmission Date: 20140127
  Serious: Yes (Other)
  Sender: FDA-Public Use
  Company Number: US-ABBOTT-12P-163-0955435-00

PATIENT
  Sex: Male
  Weight: 79.45 kg

DRUGS (5)
  1. ANDROGEL 1% [Suspect]
     Indication: BLOOD TESTOSTERONE DECREASED
     Dosage: 10G ONE DAY FOLLOWED BY 5G THE NEXT DAY
     Dates: start: 2005, end: 201112
  2. ANDROGEL 1% [Suspect]
     Dosage: 10G ONE DAY FOLLOWED BY 5G THE NEXT DAY
     Dates: start: 201203, end: 201203
  3. ANDROGEL 1.62% [Suspect]
     Indication: BLOOD TESTOSTERONE DECREASED
     Dates: start: 201207
  4. LISINOPRIL [Concomitant]
     Indication: HYPERTENSION
  5. PRAVASTATIN [Concomitant]
     Indication: BLOOD CHOLESTEROL INCREASED

REACTIONS (4)
  - Dysuria [Recovered/Resolved]
  - Prostatomegaly [Unknown]
  - Dysuria [Recovered/Resolved]
  - Bone disorder [Unknown]
